FAERS Safety Report 20736202 (Version 1)
Quarter: 2022Q2

REPORT INFORMATION
  Report Type: Spontaneous
  Country: US (occurrence: None)
  Receive Date: 20220421
  Receipt Date: 20220421
  Transmission Date: 20220720
  Serious: Yes (Hospitalization, Other)
  Sender: FDA-Public Use
  Company Number: None

PATIENT
  Age: 65 Year
  Sex: Male
  Weight: 95.3 kg

DRUGS (1)
  1. BARICITINIB [Suspect]
     Active Substance: BARICITINIB
     Indication: COVID-19
     Dosage: FREQUENCY : DAILY;?
     Route: 048
     Dates: start: 20220120, end: 20220127

REACTIONS (9)
  - Acute respiratory distress syndrome [None]
  - Hypernatraemia [None]
  - Blood creatinine increased [None]
  - Atrial fibrillation [None]
  - Melaena [None]
  - Blood pressure decreased [None]
  - Headache [None]
  - Haemoglobin decreased [None]
  - Medical device site ulcer [None]

NARRATIVE: CASE EVENT DATE: 20220128
